FAERS Safety Report 7853654-1 (Version None)
Quarter: 2011Q4

REPORT INFORMATION
  Report Type: 
  Country: None (occurrence: None)
  Receive Date: 20111026
  Receipt Date: 20111021
  Transmission Date: 20120403
  Serious: Yes (Other)
  Sender: FDA-Public Use
  Company Number: US-PFIZER INC-2011256667

PATIENT
  Age: 82 Year
  Sex: Female

DRUGS (6)
  1. MECLIZINE HCL [Suspect]
     Dosage: UNK
  2. VITAMIN D [Suspect]
     Dosage: UNK
  3. ASCORBIC ACID [Suspect]
     Dosage: UNK
  4. COLACE [Suspect]
     Dosage: UNK
  5. INSULIN [Suspect]
     Dosage: UNK
  6. LOVAZA [Suspect]
     Dosage: UNK

REACTIONS (1)
  - BLOOD GLUCOSE DECREASED [None]
